FAERS Safety Report 6802996-7 (Version None)
Quarter: 2010Q2

REPORT INFORMATION
  Report Type: 
  Country: None (occurrence: None)
  Receive Date: 20100628
  Receipt Date: 20100618
  Transmission Date: 20101027
  Serious: Yes (Hospitalization, Other)
  Sender: FDA-Public Use
  Company Number: US-AMGEN-TCS418951

PATIENT
  Sex: Female

DRUGS (2)
  1. ENBREL [Suspect]
     Indication: RHEUMATOID ARTHRITIS
     Route: 058
     Dates: start: 20090101
  2. ENBREL [Suspect]
     Indication: PSORIASIS

REACTIONS (13)
  - CORONARY ARTERY OCCLUSION [None]
  - DEAFNESS [None]
  - DYSSTASIA [None]
  - EAR INFECTION [None]
  - FATIGUE [None]
  - MALIGNANT MELANOMA [None]
  - OXYGEN SATURATION DECREASED [None]
  - PAIN [None]
  - PSORIASIS [None]
  - SKIN EXFOLIATION [None]
  - SOMNOLENCE [None]
  - SQUAMOUS CELL CARCINOMA [None]
  - THERAPEUTIC RESPONSE DECREASED [None]
